FAERS Safety Report 20028655 (Version 1)
Quarter: 2021Q4

REPORT INFORMATION
  Report Type: Spontaneous
  Country: US (occurrence: US)
  Receive Date: 20211103
  Receipt Date: 20211103
  Transmission Date: 20220303
  Serious: No
  Sender: FDA-Public Use
  Company Number: US-GLAXOSMITHKLINE-US2021224897

PATIENT
  Age: 69 Year
  Sex: Female

DRUGS (1)
  1. VENTOLIN HFA [Suspect]
     Active Substance: ALBUTEROL SULFATE
     Indication: Asthma
     Dosage: 2 PUFF(S) (VENTOLIN HFA 90 MCG2 PUFFS AS NEEDED EVERY 4-6 HOURS.)
     Dates: start: 198901

REACTIONS (1)
  - Throat irritation [Not Recovered/Not Resolved]

NARRATIVE: CASE EVENT DATE: 20211029
